FAERS Safety Report 16659398 (Version 2)
Quarter: 2020Q1

REPORT INFORMATION
  Report Type: Spontaneous
  Country: ES (occurrence: ES)
  Receive Date: 20190802
  Receipt Date: 20200217
  Transmission Date: 20200409
  Serious: Yes (Life-Threatening, Hospitalization, Other)
  Sender: FDA-Public Use
  Company Number: ES-AUROBINDO-AUR-APL-2019-044837

PATIENT
  Age: 34 Year
  Sex: Male

DRUGS (6)
  1. SERTRALINE [Interacting]
     Active Substance: SERTRALINE HYDROCHLORIDE
     Dosage: 150 MILLIGRAM, ONCE A DAY
     Route: 048
     Dates: start: 20190401, end: 20190408
  2. AMISULPRIDE [Interacting]
     Active Substance: AMISULPRIDE
     Indication: PSYCHOTIC DISORDER
     Dosage: 100 MILLIGRAM, ONCE A DAY
     Route: 048
     Dates: start: 20190404, end: 20190408
  3. CLOMIPRAMINE [Interacting]
     Active Substance: CLOMIPRAMINE
     Indication: PSYCHOTIC DISORDER
     Dosage: 25 MILLIGRAM, ONCE A DAY
     Route: 065
     Dates: start: 20190403
  4. CLOZAPINE. [Interacting]
     Active Substance: CLOZAPINE
     Indication: PSYCHOTIC DISORDER
     Dosage: 200 MILLIGRAM, TWO TIMES A DAY
     Route: 048
     Dates: start: 20150324, end: 20190409
  5. SERTRALINE [Suspect]
     Active Substance: SERTRALINE HYDROCHLORIDE
     Indication: OBSESSIVE-COMPULSIVE DISORDER
     Dosage: 200 MILLIGRAM, ONCE A DAY
     Route: 048
     Dates: start: 20160909, end: 20190401
  6. HALOPERIDOL. [Interacting]
     Active Substance: HALOPERIDOL
     Indication: PSYCHOTIC DISORDER
     Dosage: UNK
     Route: 065
     Dates: start: 20190404, end: 20190408

REACTIONS (1)
  - Neuroleptic malignant syndrome [Recovered/Resolved with Sequelae]

NARRATIVE: CASE EVENT DATE: 20190407
